FAERS Safety Report 7040418-4 (Version None)
Quarter: 2010Q4

REPORT INFORMATION
  Report Type: 
  Country: None (occurrence: None)
  Receive Date: 20101008
  Receipt Date: 20101008
  Transmission Date: 20110411
  Serious: No
  Sender: FDA-Public Use
  Company Number: None

PATIENT
  Sex: Female
  Weight: 51 kg

DRUGS (2)
  1. REGLAN [Suspect]
     Indication: NAUSEA
     Dosage: 10 MG EVERY 6 HOURS AS NEEDED PO
     Route: 048
  2. REGLAN [Suspect]
     Indication: VOMITING
     Dosage: 10 MG EVERY 6 HOURS AS NEEDED PO
     Route: 048

REACTIONS (1)
  - OESOPHAGEAL ULCER [None]
